FAERS Safety Report 22041940 (Version 1)
Quarter: 2023Q1

REPORT INFORMATION
  Report Type: Spontaneous
  Country: None (occurrence: PL)
  Receive Date: 20230227
  Receipt Date: 20230227
  Transmission Date: 20230418
  Serious: Yes (Hospitalization, Other)
  Sender: FDA-Public Use
  Company Number: PL-B.Braun Medical Inc.-2138493

PATIENT
  Age: 7 Year
  Sex: Male

DRUGS (6)
  1. ACETAMINOPHEN [Suspect]
     Active Substance: ACETAMINOPHEN
     Indication: Pyrexia
  2. BUDESONIDE [Suspect]
     Active Substance: BUDESONIDE
  3. AMOXICILLIN\CLAVULANIC ACID [Suspect]
     Active Substance: AMOXICILLIN\CLAVULANIC ACID
  4. IBUPROFEN [Suspect]
     Active Substance: IBUPROFEN
  5. CLARITHROMYCIN [Suspect]
     Active Substance: CLARITHROMYCIN
  6. CEFUROXIME [Suspect]
     Active Substance: CEFUROXIME

REACTIONS (3)
  - Anaphylactic reaction [Unknown]
  - Drug hypersensitivity [Unknown]
  - Rotavirus infection [Recovered/Resolved]
